FAERS Safety Report 5476593-2 (Version None)
Quarter: 2007Q4

REPORT INFORMATION
  Report Type: 
  Country: None (occurrence: None)
  Receive Date: 20071004
  Receipt Date: 20070926
  Transmission Date: 20080405
  Serious: Yes (Hospitalization)
  Sender: FDA-Public Use
  Company Number: PHBS2006DK05444

PATIENT
  Age: 20 Year
  Sex: Male

DRUGS (3)
  1. LEPONEX [Suspect]
     Indication: SCHIZOPHRENIA
     Dosage: 900 MG/D
     Route: 065
     Dates: start: 20050801
  2. LEPONEX [Suspect]
     Dosage: 900 MG/D
     Route: 065
  3. SEROQUEL [Concomitant]
     Dosage: 1200 MG/D
     Route: 065

REACTIONS (1)
  - CARDIAC MURMUR [None]
